FAERS Safety Report 10241769 (Version 1)
Quarter: 2014Q2

REPORT INFORMATION
  Report Type: Spontaneous
  Country: US (occurrence: US)
  Receive Date: 20140617
  Receipt Date: 20140617
  Transmission Date: 20141212
  Serious: Yes (Other)
  Sender: FDA-Public Use
  Company Number: US-SA-2014SA076095

PATIENT
  Age: 58 Year
  Sex: Female

DRUGS (1)
  1. LOVENOX [Suspect]
     Indication: PRODUCT USED FOR UNKNOWN INDICATION
     Route: 065

REACTIONS (13)
  - Myocardial infarction [Unknown]
  - Cerebrovascular accident [Unknown]
  - Cardiac tamponade [Unknown]
  - Renal failure chronic [Unknown]
  - Diabetes insipidus [Unknown]
  - Arthritis [Unknown]
  - Bipolar disorder [Unknown]
  - Hypercoagulation [Unknown]
  - Asthma [Unknown]
  - Hypothyroidism [Unknown]
  - Sleep apnoea syndrome [Unknown]
  - Hyperlipidaemia [Unknown]
  - Mental disorder [Unknown]
